FAERS Safety Report 15840247 (Version 1)
Quarter: 2019Q1

REPORT INFORMATION
  Report Type: Spontaneous
  Country: US (occurrence: US)
  Receive Date: 20190117
  Receipt Date: 20190117
  Transmission Date: 20190417
  Serious: No
  Sender: FDA-Public Use
  Company Number: US-ASTRAZENECA-2008BM09304

PATIENT
  Age: 65 Year
  Sex: Female

DRUGS (6)
  1. EXENATIDE. [Concomitant]
     Active Substance: EXENATIDE
     Dosage: 5MCG PEN, DISPOSABLE DEVICE
  2. METFORMIN [Concomitant]
     Active Substance: METFORMIN HYDROCHLORIDE
     Indication: TYPE 2 DIABETES MELLITUS
     Dosage: UNK
  3. ASPIRIN. [Concomitant]
     Active Substance: ASPIRIN
     Route: 065
  4. BYDUREON BCISE [Suspect]
     Active Substance: EXENATIDE
     Route: 058
     Dates: start: 201810
  5. BYETTA [Suspect]
     Active Substance: EXENATIDE
     Indication: TYPE 2 DIABETES MELLITUS
     Route: 058
     Dates: start: 200801
  6. TASIGNA [Concomitant]
     Active Substance: NILOTINIB
     Indication: MYELOID LEUKAEMIA
     Route: 065

REACTIONS (10)
  - Scratch [Unknown]
  - Injection site pruritus [Unknown]
  - Injection site nodule [Unknown]
  - Weight fluctuation [Unknown]
  - Injection site pain [Unknown]
  - Drug ineffective [Unknown]
  - Panic reaction [Unknown]
  - Insomnia [Unknown]
  - Weight decreased [Recovered/Resolved]
  - Decreased appetite [Recovering/Resolving]

NARRATIVE: CASE EVENT DATE: 2008
